FAERS Safety Report 9931584 (Version 2)
Quarter: 2014Q1

REPORT INFORMATION
  Report Type: Spontaneous
  Country: IT (occurrence: None)
  Receive Date: 20140225
  Receipt Date: 20140328
  Transmission Date: 20141002
  Serious: Yes (Death)
  Sender: FDA-Public Use
  Company Number: 2014MPI00109

PATIENT
  Age: 50 Year
  Sex: Male

DRUGS (4)
  1. ADCETRIS ( BRENTUXIMAB VEDOTIN) INJECTION [Suspect]
     Indication: PRODUCT USED FOR UNKNOWN INDICATION
     Route: 042
     Dates: start: 20130131, end: 20130131
  2. VORICONAZOLE ( VORICONAZOLE) [Concomitant]
  3. ACYCLOVIR ( ACICLOVIR) [Concomitant]
  4. OMEPRAZOLE ( OMEPRAZOLE) [Suspect]

REACTIONS (4)
  - Cardiac arrest [None]
  - Haemoptysis [None]
  - Respiratory failure [None]
  - Cardio-respiratory arrest [None]
